FAERS Safety Report 5156606-8 (Version None)
Quarter: 2006Q4

REPORT INFORMATION
  Report Type: 
  Country: None (occurrence: None)
  Receive Date: 20061115
  Receipt Date: 20061031
  Transmission Date: 20070319
  Serious: Yes (Other)
  Sender: FDA-Public Use
  Company Number: 231996

PATIENT
  Age: 53 Year
  Sex: Female
  Weight: 55.8 kg

DRUGS (3)
  1. AVASTIN [Suspect]
     Indication: BREAST CANCER
     Dosage: 560 MG, Q2W, INTRAVENOUS
     Route: 042
     Dates: start: 20051019
  2. DOXORUBICIN HCL [Suspect]
     Indication: BREAST CANCER
     Dosage: 90 MG, Q2W, INTRAVENOUS
     Route: 042
     Dates: start: 20051019
  3. CYTOXAN [Suspect]
     Indication: BREAST CANCER
     Dosage: 900 MG, Q2W, INTRAVENOUS
     Route: 042
     Dates: start: 20051019

REACTIONS (3)
  - CHEST PAIN [None]
  - NEUTROPENIA [None]
  - PLATELET COUNT DECREASED [None]
